FAERS Safety Report 9090676 (Version 3)
Quarter: 2013Q1

REPORT INFORMATION
  Report Type: Spontaneous
  Country: US (occurrence: US)
  Receive Date: 20130131
  Receipt Date: 20130313
  Transmission Date: 20140127
  Serious: Yes (Death, Other)
  Sender: FDA-Public Use
  Company Number: US-PFIZER INC-2013001648

PATIENT
  Age: 72 Year
  Sex: Female

DRUGS (3)
  1. REVATIO [Suspect]
     Indication: PULMONARY ARTERIAL HYPERTENSION
     Dosage: 20 MG, 3X/DAY
     Dates: start: 20091119
  2. REVATIO [Suspect]
     Dosage: 60 MG, 3X/DAY
     Route: 048
  3. PREDNISONE [Concomitant]
     Dosage: UNK

REACTIONS (1)
  - Pulmonary hypertension [Fatal]
